FAERS Safety Report 13185860 (Version 2)
Quarter: 2017Q1

REPORT INFORMATION
  Report Type: Report from Study
  Country: None (occurrence: RO)
  Receive Date: 20170203
  Receipt Date: 20170220
  Transmission Date: 20170428
  Serious: Yes (Hospitalization, Other)
  Sender: FDA-Public Use
  Company Number: RO-ABBVIE-17P-135-1857267-00

PATIENT
  Age: 75 Year
  Sex: Female
  Weight: 60 kg

DRUGS (7)
  1. VIEKIRAX [Suspect]
     Active Substance: OMBITASVIR\PARITAPREVIR\RITONAVIR
     Indication: HEPATITIS C
     Route: 048
     Dates: start: 20161107, end: 20170125
  2. VIEKIRAX [Suspect]
     Active Substance: OMBITASVIR\PARITAPREVIR\RITONAVIR
     Indication: HEPATIC CIRRHOSIS
  3. EXVIERA [Suspect]
     Active Substance: DASABUVIR
     Indication: HEPATIC CIRRHOSIS
  4. REBETOL [Concomitant]
     Active Substance: RIBAVIRIN
     Indication: HEPATITIS C
     Route: 048
     Dates: start: 20161107, end: 20170125
  5. URSOFALK [Concomitant]
     Active Substance: URSODIOL
     Indication: LIVER DISORDER
     Route: 048
  6. EXVIERA [Suspect]
     Active Substance: DASABUVIR
     Indication: HEPATITIS C
     Route: 048
     Dates: start: 20161107, end: 20170125
  7. REBETOL [Concomitant]
     Active Substance: RIBAVIRIN
     Indication: HEPATIC CIRRHOSIS

REACTIONS (8)
  - Gastrointestinal haemorrhage [Recovered/Resolved]
  - Hepatic neoplasm [Not Recovered/Not Resolved]
  - Ascites [Not Recovered/Not Resolved]
  - Abdominal distension [Unknown]
  - Hepatic cancer [Unknown]
  - Diarrhoea [Recovered/Resolved]
  - Oesophageal varices haemorrhage [Recovered/Resolved]
  - Urinary retention [Not Recovered/Not Resolved]

NARRATIVE: CASE EVENT DATE: 201611
